FAERS Safety Report 10030470 (Version 2)
Quarter: 2014Q1

REPORT INFORMATION
  Report Type: Spontaneous
  Country: US (occurrence: US)
  Receive Date: 20140323
  Receipt Date: 20140323
  Transmission Date: 20141002
  Serious: No
  Sender: FDA-Public Use
  Company Number: US-ALLERGAN-1402297US

PATIENT
  Sex: Female

DRUGS (2)
  1. LATISSE 0.03% [Suspect]
     Indication: GROWTH OF EYELASHES
     Dosage: UNK
     Dates: start: 201312
  2. A MOISTURE DROP [Concomitant]
     Indication: EYE LUBRICATION THERAPY
     Dosage: UNK, QAM
     Route: 047

REACTIONS (6)
  - Inappropriate schedule of drug administration [Unknown]
  - Swelling face [Recovered/Resolved]
  - Erythema [Recovered/Resolved]
  - Madarosis [Unknown]
  - Eyelid oedema [Recovered/Resolved]
  - Erythema of eyelid [Recovered/Resolved]
